FAERS Safety Report 14000571 (Version 3)
Quarter: 2017Q4

REPORT INFORMATION
  Report Type: Spontaneous
  Country: GB (occurrence: GB)
  Receive Date: 20170922
  Receipt Date: 20171222
  Transmission Date: 20180321
  Serious: Yes (Death)
  Sender: FDA-Public Use
  Company Number: GB-CELGENEUS-GBR-20170905334

PATIENT
  Sex: Male

DRUGS (13)
  1. OXYCODONE [Concomitant]
     Active Substance: OXYCODONE
     Indication: PAIN
     Dosage: 80 MILLIGRAM
     Route: 048
     Dates: start: 2007, end: 20160524
  2. HYDROCORTISONE. [Concomitant]
     Active Substance: HYDROCORTISONE
     Indication: HYPOPITUITARISM
     Dosage: 30 MILLIGRAM
     Route: 048
     Dates: start: 2006, end: 20160524
  3. ASPIRIN. [Concomitant]
     Active Substance: ASPIRIN
     Indication: THROMBOSIS PROPHYLAXIS
     Dosage: 300 MILLIGRAM
     Route: 048
     Dates: start: 2006, end: 20160524
  4. BENDROFLUMETHAZINE [Concomitant]
     Indication: JOINT SWELLING
     Dosage: 2.5 MILLIGRAM
     Route: 048
     Dates: start: 2015, end: 20160524
  5. TAMSULOSIN [Concomitant]
     Active Substance: TAMSULOSIN
     Indication: PROSTATISM
     Dosage: 1 DOSAGE FORMS
     Route: 048
     Dates: start: 2015, end: 20160524
  6. REVLIMID [Suspect]
     Active Substance: LENALIDOMIDE
     Indication: AMYLOIDOSIS
     Dosage: 10 MILLIGRAM
     Route: 048
     Dates: start: 20150930, end: 20151008
  7. ZOPICLONE [Concomitant]
     Active Substance: ZOPICLONE
     Indication: HYPNOTHERAPY
     Dosage: 3.75 MILLIGRAM
     Route: 048
     Dates: start: 2006, end: 20160524
  8. REVLIMID [Suspect]
     Active Substance: LENALIDOMIDE
     Indication: METASTASES TO MENINGES
     Dosage: 10 MILLIGRAM
     Route: 048
     Dates: start: 20150902, end: 20150923
  9. REVLIMID [Suspect]
     Active Substance: LENALIDOMIDE
     Indication: MENINGITIS
  10. REVLIMID [Suspect]
     Active Substance: LENALIDOMIDE
     Indication: OFF LABEL USE
  11. AMITRIPTYLINE [Concomitant]
     Active Substance: AMITRIPTYLINE
     Indication: PAIN
     Dosage: 25 MILLIGRAM
     Route: 048
     Dates: start: 2006, end: 20160524
  12. GABAPENTIN. [Concomitant]
     Active Substance: GABAPENTIN
     Indication: PAIN
     Dosage: 1800 MILLIGRAM
     Route: 048
     Dates: start: 2008, end: 20160524
  13. LANSOPRAZOLE. [Concomitant]
     Active Substance: LANSOPRAZOLE
     Indication: DYSPEPSIA
     Dosage: 20 MILLIGRAM
     Route: 048
     Dates: start: 2014, end: 20160524

REACTIONS (2)
  - Amyloidosis [Fatal]
  - Metastases to meninges [Fatal]
